FAERS Safety Report 10657002 (Version 1)
Quarter: 2014Q4

REPORT INFORMATION
  Report Type: Spontaneous
  Country: US (occurrence: None)
  Receive Date: 20141215
  Receipt Date: 20141215
  Transmission Date: 20150529
  Serious: Yes (Other)
  Sender: FDA-Public Use
  Company Number: 2014-US-016249

PATIENT
  Age: 26 Year
  Sex: Female

DRUGS (2)
  1. FAZACLO [Suspect]
     Active Substance: CLOZAPINE
     Indication: SCHIZOPHRENIA
     Route: 048
     Dates: start: 201406
  2. INVEGA [Concomitant]
     Active Substance: PALIPERIDONE

REACTIONS (5)
  - Myopathy [None]
  - Abdominal distension [None]
  - Cardiomegaly [None]
  - Oedema peripheral [None]
  - Myocarditis [None]

NARRATIVE: CASE EVENT DATE: 201412
